FAERS Safety Report 4620259-5 (Version None)
Quarter: 2005Q1

REPORT INFORMATION
  Report Type: 
  Country: None (occurrence: None)
  Receive Date: 20050324
  Receipt Date: 20050309
  Transmission Date: 20050727
  Serious: Yes (Death, Hospitalization, Other)
  Sender: FDA-Public Use
  Company Number: JP_050306070

PATIENT
  Age: 60 Year
  Sex: Female

DRUGS (4)
  1. ONCOVIN [Suspect]
     Indication: LYMPHOMA
  2. RITUXIMAB [Concomitant]
  3. CYCLOPHOSPHAMIDE [Concomitant]
  4. DOXORUBICIN HYDROCHLORIDE [Concomitant]

REACTIONS (6)
  - HBV DNA INCREASED [None]
  - HEPATIC ATROPHY [None]
  - HEPATIC FAILURE [None]
  - HEPATITIS FULMINANT [None]
  - HEPATOMEGALY [None]
  - PNEUMONIA FUNGAL [None]
